FAERS Safety Report 6651565-0 (Version None)
Quarter: 2010Q1

REPORT INFORMATION
  Report Type: 
  Country: None (occurrence: None)
  Receive Date: 20100325
  Receipt Date: 20100317
  Transmission Date: 20100710
  Serious: Yes (Other)
  Sender: FDA-Public Use
  Company Number: B0640563A

PATIENT
  Sex: Female

DRUGS (1)
  1. IMIGRAN AUTOINJECTOR [Suspect]
     Indication: MIGRAINE
     Route: 042
     Dates: start: 20100308

REACTIONS (6)
  - DEVICE MALFUNCTION [None]
  - DISABILITY [None]
  - DRUG INEFFECTIVE [None]
  - PAIN [None]
  - PERFORMANCE STATUS DECREASED [None]
  - PRODUCT QUALITY ISSUE [None]
